FAERS Safety Report 18622436 (Version 4)
Quarter: 2021Q4

REPORT INFORMATION
  Report Type: Report from Study
  Country: US (occurrence: US)
  Receive Date: 20201216
  Receipt Date: 20211105
  Transmission Date: 20220303
  Serious: Yes (Other)
  Sender: FDA-Public Use
  Company Number: US-TAKEDA-US202032828

PATIENT
  Age: 60 Year
  Sex: Female

DRUGS (1)
  1. HUMAN IMMUNOGLOBULIN G [Suspect]
     Active Substance: HUMAN IMMUNOGLOBULIN G
     Indication: Primary immunodeficiency syndrome
     Dosage: UNK
     Route: 042

REACTIONS (9)
  - Type 2 diabetes mellitus [Unknown]
  - Basal cell carcinoma [Unknown]
  - Eye disorder [Unknown]
  - Post herpetic neuralgia [Unknown]
  - Neuralgia [Unknown]
  - Eyelid ptosis [Unknown]
  - Trigeminal nerve disorder [Unknown]
  - Scar [Recovering/Resolving]
  - Headache [Unknown]

NARRATIVE: CASE EVENT DATE: 20190801
